FAERS Safety Report 25208344 (Version 1)
Quarter: 2025Q2

REPORT INFORMATION
  Report Type: Spontaneous
  Country: US (occurrence: US)
  Receive Date: 20250417
  Receipt Date: 20250417
  Transmission Date: 20250716
  Serious: Yes (Other)
  Sender: BRISTOL MYERS SQUIBB
  Company Number: US-BRISTOL-MYERS SQUIBB COMPANY-2025-050436

PATIENT
  Age: 67 Year
  Sex: Female

DRUGS (1)
  1. THALIDOMIDE [Suspect]
     Active Substance: THALIDOMIDE
     Indication: Idiopathic pulmonary fibrosis

REACTIONS (3)
  - Deep vein thrombosis [Recovering/Resolving]
  - Neuropathy peripheral [Unknown]
  - Off label use [Unknown]
